FAERS Safety Report 5345102-0 (Version None)
Quarter: 2007Q2

REPORT INFORMATION
  Report Type: 
  Country: None (occurrence: None)
  Receive Date: 20070601
  Receipt Date: 20070524
  Transmission Date: 20071010
  Serious: Yes (Other)
  Sender: FDA-Public Use
  Company Number: THQ2007A00430

PATIENT

DRUGS (4)
  1. ACTOS [Suspect]
     Indication: DIABETES MELLITUS NON-INSULIN-DEPENDENT
     Dosage: 30 MG
     Route: 064
  2. GLIMEPIRIDE [Concomitant]
  3. LEVOTHYROXINE SODIUM [Concomitant]
  4. INSULIN [Concomitant]

REACTIONS (4)
  - DRUG EXPOSURE DURING PREGNANCY [None]
  - FOETAL DISORDER [None]
  - HYPOGLYCAEMIA NEONATAL [None]
  - NECROTISING ENTEROCOLITIS NEONATAL [None]
